FAERS Safety Report 15948534 (Version 2)
Quarter: 2019Q1

REPORT INFORMATION
  Report Type: Spontaneous
  Country: DE (occurrence: DE)
  Receive Date: 20190212
  Receipt Date: 20190305
  Transmission Date: 20190417
  Serious: Yes (Hospitalization)
  Sender: FDA-Public Use
  Company Number: DE-ACCORD-106743

PATIENT
  Age: 52 Year
  Sex: Female

DRUGS (8)
  1. QUILONUM [Suspect]
     Active Substance: LITHIUM
     Indication: PRODUCT USED FOR UNKNOWN INDICATION
     Dosage: DAILY DOSE 900 MG SINCE WEEKS 24-MAR-2018,450 MG, 675 MG ADDITIONAL DOSE TAKEN,
     Route: 048
     Dates: start: 2012
  2. MIRTAZAPINE. [Concomitant]
     Active Substance: MIRTAZAPINE
     Dosage: 45MG DAILY DOSE FOR WEEKS - B.A.W.
     Route: 048
  3. FLUPENTIXOL/FLUPENTIXOL DECANOATE/FLUPENTIXOL DIHYDROCHLORIDE [Concomitant]
     Dosage: DAILY DOSE 4MG SINCE WEEKS - B.A.W.
     Route: 048
  4. EUTHYROX [Concomitant]
     Active Substance: LEVOTHYROXINE SODIUM
     Dosage: DAILY DOSE 100 MCG FOR WEEKS - B.A.W.
     Route: 048
  5. LITHIUM CARBONATE. [Suspect]
     Active Substance: LITHIUM CARBONATE
     Indication: PRODUCT USED FOR UNKNOWN INDICATION
     Dosage: TAGESDOSIS 675 MG?30.03.20818 - B.A.W.
     Route: 048
  6. AKINETON [Concomitant]
     Active Substance: BIPERIDEN HYDROCHLORIDE
     Dosage: DAILY DOSE 4MG SINCE WEEKS - B.A.W.
     Route: 048
  7. RAMIPRIL. [Suspect]
     Active Substance: RAMIPRIL
     Indication: PRODUCT USED FOR UNKNOWN INDICATION
     Dosage: DAILY DOSE 5MG SINCE WEEKS - B.A.W.
     Route: 048
     Dates: start: 201107
  8. LITHIUM CARBONATE. [Suspect]
     Active Substance: LITHIUM CARBONATE
     Indication: PRODUCT USED FOR UNKNOWN INDICATION
     Dosage: TAGESDOSIS 450MG
     Route: 048

REACTIONS (5)
  - Tremor [Recovered/Resolved]
  - Toxicity to various agents [Unknown]
  - Restlessness [Recovered/Resolved]
  - Hyperhidrosis [Recovered/Resolved]
  - Sleep disorder [Recovered/Resolved]

NARRATIVE: CASE EVENT DATE: 20180322
